FAERS Safety Report 13927470 (Version 1)
Quarter: 2017Q3

REPORT INFORMATION
  Report Type: Spontaneous
  Country: US (occurrence: US)
  Receive Date: 20170831
  Receipt Date: 20170831
  Transmission Date: 20171127
  Serious: Yes (Hospitalization)
  Sender: FDA-Public Use
  Company Number: None

PATIENT
  Sex: Female
  Weight: 81 kg

DRUGS (3)
  1. KEPPRA XR [Suspect]
     Active Substance: LEVETIRACETAM
  2. GENERIC LAMICTAL [Concomitant]
     Active Substance: LAMOTRIGINE
  3. VIMPAT [Suspect]
     Active Substance: LACOSAMIDE
     Indication: EPILEPSY
     Route: 048
     Dates: start: 20151228, end: 20160205

REACTIONS (5)
  - Diarrhoea [None]
  - Laceration [None]
  - Sepsis [None]
  - Chills [None]
  - Skin fissures [None]

NARRATIVE: CASE EVENT DATE: 20160207
